FAERS Safety Report 17785528 (Version 1)
Quarter: 2020Q2

REPORT INFORMATION
  Report Type: Spontaneous
  Country: MA (occurrence: MA)
  Receive Date: 20200514
  Receipt Date: 20200514
  Transmission Date: 20200714
  Serious: Yes (Other)
  Sender: FDA-Public Use
  Company Number: MA-MYLANLABS-2020M1047752

PATIENT
  Age: 75 Year
  Sex: Male

DRUGS (2)
  1. BUPIVACAINE. [Suspect]
     Active Substance: BUPIVACAINE
     Indication: SPINAL ANAESTHESIA
     Dosage: 2.5 MILLILITER
     Route: 037
  2. FENTANYL. [Suspect]
     Active Substance: FENTANYL
     Indication: SPINAL ANAESTHESIA
     Dosage: 25 MICROGRAM
     Route: 037

REACTIONS (3)
  - Vagus nerve paralysis [Recovered/Resolved]
  - XIth nerve paralysis [Recovered/Resolved]
  - Glossopharyngeal nerve paralysis [Recovered/Resolved]
